FAERS Safety Report 6121913-9 (Version None)
Quarter: 2009Q1

REPORT INFORMATION
  Report Type: 
  Country: None (occurrence: None)
  Receive Date: 20090313
  Receipt Date: 20090226
  Transmission Date: 20090719
  Serious: Yes (Hospitalization)
  Sender: FDA-Public Use
  Company Number: 2009S1003554

PATIENT
  Age: 66 Year
  Sex: Male

DRUGS (10)
  1. BISOPROLOL FUMARATE [Suspect]
     Indication: DRUG USE FOR UNKNOWN INDICATION
     Dosage: 1 MG; DAILY
     Dates: start: 20081010, end: 20081027
  2. ACETYLSALICYLIC ACID [Concomitant]
  3. CANDESARTAN CILEXETIL [Concomitant]
  4. CLOPIDOGREL SULFATE [Concomitant]
  5. NATEGLINIDE [Concomitant]
  6. PANTOZOL [Concomitant]
  7. RAMIPRIL [Concomitant]
  8. SIMVASTATIN [Concomitant]
  9. TORASEMIDE [Concomitant]
  10. TREVILOR [Concomitant]

REACTIONS (1)
  - BRADYARRHYTHMIA [None]
